FAERS Safety Report 5814821-1 (Version None)
Quarter: 2008Q3

REPORT INFORMATION
  Report Type: 
  Country: None (occurrence: None)
  Receive Date: 20080715
  Receipt Date: 20080630
  Transmission Date: 20090109
  Serious: Yes (Hospitalization)
  Sender: FDA-Public Use
  Company Number: TNZIE200800103

PATIENT
  Age: 36 Year
  Sex: Female

DRUGS (5)
  1. INNOHEP [Suspect]
     Indication: PROTEIN C DEFICIENCY
     Dosage: 4500 IU, DAILY, SUBCUTANEOUS
     Route: 058
     Dates: start: 20060803, end: 20070410
  2. DOSTINEX [Concomitant]
  3. CYCLOGEST (PROGESTERONE) [Concomitant]
  4. ESTROFEM (ESTRADIOL) [Concomitant]
  5. LEVOTHYROXINE SODIUM [Concomitant]

REACTIONS (6)
  - CAESAREAN SECTION [None]
  - CELLULITIS [None]
  - DRUG EXPOSURE DURING PREGNANCY [None]
  - LOWER RESPIRATORY TRACT INFECTION [None]
  - PLACENTA PRAEVIA HAEMORRHAGE [None]
  - PREMATURE LABOUR [None]
